FAERS Safety Report 7247293-3 (Version None)
Quarter: 2011Q1

REPORT INFORMATION
  Report Type: 
  Country: None (occurrence: None)
  Receive Date: 20110127
  Receipt Date: 20110121
  Transmission Date: 20110831
  Serious: Yes (Other)
  Sender: FDA-Public Use
  Company Number: A0909274A

PATIENT
  Sex: Female

DRUGS (2)
  1. PAXIL [Suspect]
  2. UNSPECIFIED MEDICATION [Concomitant]

REACTIONS (3)
  - MALAISE [None]
  - CARDIAC VALVE DISEASE [None]
  - WITHDRAWAL SYNDROME [None]
